FAERS Safety Report 13745145 (Version 1)
Quarter: 2017Q3

REPORT INFORMATION
  Report Type: Spontaneous
  Country: FR (occurrence: FR)
  Receive Date: 20170712
  Receipt Date: 20170712
  Transmission Date: 20171127
  Serious: Yes (Hospitalization)
  Sender: FDA-Public Use
  Company Number: FR-ACCORD-053476

PATIENT
  Age: 61 Year
  Sex: Female

DRUGS (6)
  1. CISPLATINE ACCORD [Suspect]
     Active Substance: CISPLATIN
     Indication: ADENOCARCINOMA
     Dosage: STRENGTH: 1 MG/ML
     Route: 042
     Dates: start: 20170609
  2. OLMESARTAN/OLMESARTAN MEDOXOMIL [Concomitant]
     Dosage: 40 MG DAILY IN THE MORNING
  3. APREPITANT. [Concomitant]
     Active Substance: APREPITANT
     Dosage: 25 MG ON DAY 1 THEN 80 MG
     Dates: start: 20170609
  4. NAVELBINE [Suspect]
     Active Substance: VINORELBINE TARTRATE
     Indication: ADENOCARCINOMA
     Route: 042
     Dates: start: 20170609
  5. HYDROCHLOROTHIAZIDE. [Concomitant]
     Active Substance: HYDROCHLOROTHIAZIDE
     Dosage: 25 MG DAILY IN THE MORNING
  6. NEBIVOLOL. [Concomitant]
     Active Substance: NEBIVOLOL

REACTIONS (10)
  - Asthenia [Not Recovered/Not Resolved]
  - Tonic clonic movements [Recovered/Resolved]
  - Nausea [Unknown]
  - Dyspepsia [Unknown]
  - Hyponatraemia [Recovered/Resolved]
  - Abnormal behaviour [Unknown]
  - Hypokalaemia [Unknown]
  - Normocytic anaemia [Unknown]
  - Inappropriate antidiuretic hormone secretion [Unknown]
  - Oedema peripheral [Unknown]

NARRATIVE: CASE EVENT DATE: 20170610
